FAERS Safety Report 8063500-1 (Version None)
Quarter: 2012Q1

REPORT INFORMATION
  Report Type: 
  Country: None (occurrence: None)
  Receive Date: 20120117
  Receipt Date: 20120103
  Transmission Date: 20120608
  Serious: Yes (Death)
  Sender: FDA-Public Use
  Company Number: B0773488A

PATIENT
  Age: 24 Year
  Sex: Male

DRUGS (7)
  1. ATROPINE + DIPHENOXYLATE (FORMULATION UNKNOWN) (GENERIC) (ATROPRINE + [Suspect]
     Dosage: ORAL
     Route: 048
  2. NORTRIPTYLINE HCL [Suspect]
     Dosage: ORAL
     Route: 048
  3. CHLORPROMAZINE HCL [Suspect]
     Dosage: ORAL
     Route: 048
  4. ANTACID (FORMULATION UNKNOWN) (GENERIC) (ANTACID) [Suspect]
     Dosage: ORAL
     Route: 048
  5. METRONIDAZOLE [Suspect]
     Dosage: ORAL
     Route: 048
  6. CITALOPRAM (FORMULATION UNKNOWN) (GENERIC) (CITALOPRAM) [Suspect]
     Dosage: ORAL
     Route: 048
  7. PAROXETINE HYDROCHLORIDE [Suspect]
     Dosage: ORAL
     Route: 048

REACTIONS (1)
  - COMPLETED SUICIDE [None]
